FAERS Safety Report 7894645-4 (Version None)
Quarter: 2011Q4

REPORT INFORMATION
  Report Type: 
  Country: None (occurrence: None)
  Receive Date: 20111106
  Receipt Date: 20110817
  Transmission Date: 20120403
  Serious: No
  Sender: FDA-Public Use
  Company Number: US-AMGEN-USASP2011042016

PATIENT
  Age: 62 Year

DRUGS (12)
  1. PREDNISONE [Concomitant]
     Dosage: 1 MG, UNK
  2. LYRICA [Concomitant]
     Dosage: 100 MG, UNK
  3. LOVAZA [Concomitant]
     Dosage: UNK
  4. HYDROCODONE/ACETAMINOPHEN          /00607101/ [Concomitant]
     Dosage: 500 MG, UNK
  5. CYMBALTA [Concomitant]
     Dosage: 20 MG, UNK
  6. ENBREL [Suspect]
     Indication: PRODUCT USED FOR UNKNOWN INDICATION
     Dosage: 50 MG, QWK
  7. BONIVA [Concomitant]
     Dosage: 150 MG, UNK
  8. VITAMIN C                          /00008001/ [Concomitant]
     Dosage: 500 MG, UNK
  9. HYDROXYCHLOROQUINE SULFATE [Concomitant]
     Dosage: 200 MG, UNK
  10. VERAPAMIL [Concomitant]
     Dosage: 100 MG, UNK
  11. SAVELLA [Concomitant]
     Dosage: 25 MG, UNK
  12. NEXIUM [Concomitant]
     Dosage: 20 MG, UNK

REACTIONS (1)
  - HEADACHE [None]
